FAERS Safety Report 12334975 (Version 1)
Quarter: 2016Q2

REPORT INFORMATION
  Report Type: Spontaneous
  Country: US (occurrence: US)
  Receive Date: 20160504
  Receipt Date: 20160504
  Transmission Date: 20160815
  Serious: Yes (Hospitalization)
  Sender: FDA-Public Use
  Company Number: US-BAYER-2016-084864

PATIENT
  Age: 19 Year
  Sex: Male

DRUGS (1)
  1. CLARITIN [Suspect]
     Active Substance: LORATADINE
     Indication: MULTIPLE ALLERGIES
     Dosage: 1 DF, QD
     Route: 048
     Dates: start: 20160430, end: 20160501

REACTIONS (3)
  - Palpitations [Not Recovered/Not Resolved]
  - Cardiac disorder [None]
  - Product use issue [None]

NARRATIVE: CASE EVENT DATE: 20160430
